FAERS Safety Report 21211613 (Version 1)
Quarter: 2022Q3

REPORT INFORMATION
  Report Type: Report from Study
  Country: FR (occurrence: FR)
  Receive Date: 20220815
  Receipt Date: 20220815
  Transmission Date: 20221027
  Serious: Yes (Life-Threatening)
  Sender: FDA-Public Use
  Company Number: FR-PFIZER INC-PV202200042358

PATIENT
  Age: 15 Year
  Sex: Female
  Weight: 62 kg

DRUGS (4)
  1. ATGAM [Suspect]
     Active Substance: EQUINE THYMOCYTE IMMUNE GLOBULIN
     Indication: Bone marrow failure
     Dosage: 40 MG/KG, DAILY
     Route: 042
     Dates: start: 20210812
  2. CYCLOSPORINE [Concomitant]
     Active Substance: CYCLOSPORINE
     Indication: Aplasia
     Dosage: 90 MG, 2X/DAY
     Route: 048
     Dates: start: 20210812, end: 20210818
  3. POLARAMINE [Concomitant]
     Active Substance: DEXCHLORPHENIRAMINE MALEATE
     Indication: Inflammation
     Dosage: 1 AMPOULE, 1X/DAY
     Route: 042
     Dates: start: 20210812, end: 20210815
  4. PERFALGAN [Concomitant]
     Active Substance: ACETAMINOPHEN
     Indication: Pyrexia
     Dosage: 1 G, 3X/DAY
     Route: 042
     Dates: start: 20210812, end: 20210815

REACTIONS (1)
  - Generalised tonic-clonic seizure [Recovered/Resolved]

NARRATIVE: CASE EVENT DATE: 20210818
